FAERS Safety Report 7543904-3 (Version None)
Quarter: 2011Q2

REPORT INFORMATION
  Report Type: 
  Country: None (occurrence: None)
  Receive Date: 20110613
  Receipt Date: 20110606
  Transmission Date: 20111010
  Serious: Yes (Death, Other)
  Sender: FDA-Public Use
  Company Number: US-CELGENEUS-163-21880-11060735

PATIENT

DRUGS (3)
  1. REVLIMID [Suspect]
  2. REVLIMID [Suspect]
  3. REVLIMID [Suspect]
     Indication: LYMPHOMA
     Route: 048

REACTIONS (5)
  - LEUKOPENIA [None]
  - NEUTROPENIA [None]
  - RASH [None]
  - ANAEMIA [None]
  - DISEASE PROGRESSION [None]
